FAERS Safety Report 8513387-5 (Version None)
Quarter: 2012Q3

REPORT INFORMATION
  Report Type: 
  Country: None (occurrence: None)
  Receive Date: 20120717
  Receipt Date: 20120712
  Transmission Date: 20120928
  Serious: Yes (Hospitalization)
  Sender: FDA-Public Use
  Company Number: US-AMGEN-USASP2012040807

PATIENT
  Age: 68 Year
  Sex: Female

DRUGS (1)
  1. ENBREL [Suspect]
     Indication: RHEUMATOID ARTHRITIS
     Dosage: 50 MG, QWK
     Dates: start: 20070831, end: 20090101

REACTIONS (6)
  - INFECTION [None]
  - FATIGUE [None]
  - IRON DEFICIENCY ANAEMIA [None]
  - BONE DEFORMITY [None]
  - FOOT DEFORMITY [None]
  - OSTEOARTHRITIS [None]
